FAERS Safety Report 5358492-X (Version None)
Quarter: 2007Q2

REPORT INFORMATION
  Report Type: 
  Country: None (occurrence: None)
  Receive Date: 20070601
  Receipt Date: 20070201
  Transmission Date: 20071010
  Serious: No
  Sender: FDA-Public Use
  Company Number: PHEH2007US01552

PATIENT
  Sex: Male

DRUGS (1)
  1. ENABLEX [Suspect]
     Dates: start: 20070201

REACTIONS (1)
  - DRUG INEFFECTIVE [None]
